FAERS Safety Report 11847767 (Version 1)
Quarter: 2015Q4

REPORT INFORMATION
  Report Type: Spontaneous
  Country: US (occurrence: US)
  Receive Date: 20151217
  Receipt Date: 20151217
  Transmission Date: 20160305
  Serious: No
  Sender: FDA-Public Use
  Company Number: US-GLAXOSMITHKLINE-US2015GSK175026

PATIENT
  Sex: Female

DRUGS (1)
  1. TANZEUM [Suspect]
     Active Substance: ALBIGLUTIDE
     Indication: TYPE 2 DIABETES MELLITUS
     Dosage: 30 MG, WE
     Dates: start: 201510

REACTIONS (10)
  - Abnormal faeces [Unknown]
  - Application site reaction [Unknown]
  - Diarrhoea [Unknown]
  - Injection site haemorrhage [Unknown]
  - Influenza like illness [Unknown]
  - Device use error [Unknown]
  - Device leakage [Unknown]
  - Nasopharyngitis [Unknown]
  - Sinusitis [Unknown]
  - Accidental exposure to product [Unknown]
